FAERS Safety Report 4297984-1 (Version None)
Quarter: 2004Q1

REPORT INFORMATION
  Report Type: 
  Country: None (occurrence: None)
  Receive Date: 20040218
  Receipt Date: 20010122
  Transmission Date: 20041129
  Serious: Yes (Hospitalization, Other)
  Sender: FDA-Public Use
  Company Number: US-BRISTOL-MYERS SQUIBB COMPANY-10692002

PATIENT
  Age: 41 Year
  Sex: Female
  Weight: 67 kg

DRUGS (19)
  1. STADOL [Suspect]
     Indication: MIGRAINE
     Dosage: HAS BEEN ON ^10 YRS^. USING UP TO 1 AND 1/2 BOTTLES OR 15 MG PER DAY, 10 BOTTLES Q 7 DAYS
     Route: 045
     Dates: start: 19930101
  2. STADOL [Suspect]
     Indication: BACK PAIN
     Dosage: HAS BEEN ON ^10 YRS^. USING UP TO 1 AND 1/2 BOTTLES OR 15 MG PER DAY, 10 BOTTLES Q 7 DAYS
     Route: 045
     Dates: start: 19930101
  3. FLEXERIL [Concomitant]
     Dates: start: 19870101
  4. PERCOCET [Concomitant]
     Dates: start: 19870101
  5. NAPROSYN [Concomitant]
     Dates: start: 19880101
  6. PROZAC [Concomitant]
     Dates: start: 19930101
  7. ADVIL [Concomitant]
     Dates: start: 19930101
  8. HALCION [Concomitant]
     Dates: start: 19910101
  9. SOMA [Concomitant]
     Dates: start: 19930101
  10. FIORINAL [Concomitant]
  11. TYLOX [Concomitant]
  12. ANAPROX [Concomitant]
  13. AMBIEN [Concomitant]
     Dates: start: 19960101
  14. PEPCID [Concomitant]
     Dates: start: 19980101
  15. MORPHINE [Concomitant]
     Dates: start: 19990101
  16. DURAGESIC [Concomitant]
     Dates: start: 19990101
  17. PREVACID [Concomitant]
     Dates: start: 19990101
  18. LODINE XL [Concomitant]
     Dates: start: 19990101
  19. PREMARIN [Concomitant]
     Dates: start: 19990101

REACTIONS (3)
  - DEPENDENCE [None]
  - DRUG ADDICT [None]
  - DRUG WITHDRAWAL SYNDROME [None]
